FAERS Safety Report 9802747 (Version 1)
Quarter: 2014Q1

REPORT INFORMATION
  Report Type: Report from Study
  Country: US (occurrence: US)
  Receive Date: 20140108
  Receipt Date: 20140108
  Transmission Date: 20141002
  Serious: Yes (Hospitalization)
  Sender: FDA-Public Use
  Company Number: US-ROCHE-1330504

PATIENT
  Sex: Male

DRUGS (2)
  1. CELLCEPT [Suspect]
     Indication: PANCREAS TRANSPLANT
     Route: 048
  2. PROGRAF [Concomitant]

REACTIONS (2)
  - Pancreas transplant rejection [Unknown]
  - Upper respiratory tract infection [Unknown]
